FAERS Safety Report 18193326 (Version 1)
Quarter: 2020Q3

REPORT INFORMATION
  Report Type: Spontaneous
  Country: IN (occurrence: IN)
  Receive Date: 20200825
  Receipt Date: 20200825
  Transmission Date: 20201103
  Serious: Yes (Other)
  Sender: FDA-Public Use
  Company Number: IN-CELGENEUS-IND-20200804880

PATIENT
  Sex: Female

DRUGS (4)
  1. RIFAMPICIN [Concomitant]
     Active Substance: RIFAMPIN
     Indication: TYPE 2 LEPRA REACTION
     Route: 065
  2. THALIDOMIDE [Suspect]
     Active Substance: THALIDOMIDE
     Indication: TYPE 2 LEPRA REACTION
     Dosage: 200 MILLIGRAM
     Route: 048
  3. CLOFAZIMINE [Concomitant]
     Active Substance: CLOFAZIMINE
     Indication: TYPE 2 LEPRA REACTION
     Route: 065
  4. CLOFAZIMINE [Concomitant]
     Active Substance: CLOFAZIMINE
     Dosage: 300 MILLIGRAM
     Route: 065

REACTIONS (9)
  - Fatigue [Unknown]
  - Mood altered [Unknown]
  - Oedema peripheral [Recovered/Resolved]
  - Decreased appetite [Unknown]
  - Exfoliative rash [Unknown]
  - Erythema [Unknown]
  - Malaise [Unknown]
  - Face oedema [Recovered/Resolved]
  - Dizziness [Unknown]
